FAERS Safety Report 9241161 (Version 2)
Quarter: 2013Q4

REPORT INFORMATION
  Report Type: Spontaneous
  Country: JP (occurrence: JP)
  Receive Date: 20130419
  Receipt Date: 20131230
  Transmission Date: 20140711
  Serious: No
  Sender: FDA-Public Use
  Company Number: JP-JNJFOC-20130403560

PATIENT
  Sex: Female

DRUGS (1)
  1. DUROTEP MT [Suspect]
     Indication: PAIN
     Route: 062

REACTIONS (3)
  - Pyrexia [Unknown]
  - Treatment noncompliance [Unknown]
  - Wrong technique in drug usage process [Unknown]
